FAERS Safety Report 19518395 (Version 2)
Quarter: 2024Q3

REPORT INFORMATION
  Report Type: Spontaneous
  Country: US (occurrence: US)
  Receive Date: 20210712
  Receipt Date: 20240808
  Transmission Date: 20241017
  Serious: No
  Sender: SANOFI AVENTIS
  Company Number: US-SA-SAC20210708000165

PATIENT
  Age: 41 Year
  Sex: Female

DRUGS (7)
  1. DUPIXENT [Suspect]
     Active Substance: DUPILUMAB
     Indication: Dermatitis atopic
     Dosage: 300 MG, QOW
     Route: 058
     Dates: start: 20191115
  2. DUPIXENT [Suspect]
     Active Substance: DUPILUMAB
     Indication: Eczema
  3. VITAMINS NOS [Concomitant]
     Active Substance: VITAMINS
     Dosage: UNK UNK, QD
  4. SINGULAIR [Concomitant]
     Active Substance: MONTELUKAST SODIUM
     Dosage: UNK
  5. ZYRTEC [Concomitant]
     Active Substance: CETIRIZINE HYDROCHLORIDE
     Dosage: UNK
  6. SULFAMETHOXAZOLE\TRIMETHOPRIM [Concomitant]
     Active Substance: SULFAMETHOXAZOLE\TRIMETHOPRIM
     Dosage: UNK
  7. LORYNA [Concomitant]
     Active Substance: DROSPIRENONE\ETHINYL ESTRADIOL
     Dosage: UNK

REACTIONS (4)
  - Dry skin [Unknown]
  - Skin fissures [Unknown]
  - Skin exfoliation [Unknown]
  - Pruritus [Unknown]
